FAERS Safety Report 8693476 (Version 2)
Quarter: 2015Q3

REPORT INFORMATION
  Report Type: Report from Study
  Country: US (occurrence: US)
  Receive Date: 20120730
  Receipt Date: 20150812
  Transmission Date: 20151125
  Serious: Yes (Other)
  Sender: FDA-Public Use
  Company Number: US-ROCHE-1092280

PATIENT
  Sex: Female
  Weight: 64.5 kg

DRUGS (12)
  1. ENTEX (UNITED STATES) [Concomitant]
     Route: 065
  2. ZYRTEC [Concomitant]
     Active Substance: CETIRIZINE HYDROCHLORIDE
  3. ENTEX (UNITED STATES) [Concomitant]
     Route: 065
  4. VOLMAX [Concomitant]
     Active Substance: ALBUTEROL SULFATE
     Route: 048
  5. XOLAIR [Suspect]
     Active Substance: OMALIZUMAB
     Route: 058
     Dates: start: 20040312
  6. XOLAIR [Suspect]
     Active Substance: OMALIZUMAB
     Indication: ASTHMA
     Dosage: MAINTANANCE DOSE: 150 MG RIGHT AND 75 MG IN LEFT ARM.
     Route: 058
     Dates: start: 2003
  7. THEOPHYLLIN [Concomitant]
     Active Substance: THEOPHYLLINE ANHYDROUS
     Route: 065
  8. VOSPIRE ER [Concomitant]
     Active Substance: ALBUTEROL SULFATE
     Route: 065
  9. PREDNISONE. [Concomitant]
     Active Substance: PREDNISONE
     Route: 065
  10. AVELOX (UNITED STATES) [Concomitant]
     Route: 065
  11. ADVAIR HFA [Concomitant]
     Active Substance: FLUTICASONE PROPIONATE\SALMETEROL XINAFOATE
     Dosage: 50 UNIT NOT REPORTED
     Route: 065
  12. ALBUTEROL. [Concomitant]
     Active Substance: ALBUTEROL

REACTIONS (6)
  - Sinusitis [Unknown]
  - Aphonia [Unknown]
  - Cough [Unknown]
  - Dyspnoea [Unknown]
  - Wheezing [Unknown]
  - Middle insomnia [Unknown]
